FAERS Safety Report 6213156-5 (Version None)
Quarter: 2009Q2

REPORT INFORMATION
  Report Type: 
  Country: None (occurrence: None)
  Receive Date: 20090603
  Receipt Date: 20090527
  Transmission Date: 20091009
  Serious: Yes (Hospitalization)
  Sender: FDA-Public Use
  Company Number: US-ROCHE-621433

PATIENT
  Sex: Female

DRUGS (2)
  1. PEG-INTERFERON A-2A (RO 25-8310) [Suspect]
     Indication: HEPATITIS C
     Dosage: PATIENT IN WEEK 31, FORM: PFS (PRE FILLED SYRINGE)
     Route: 065
     Dates: start: 20081024
  2. RIBASPHERE [Suspect]
     Indication: HEPATITIS C
     Dosage: PATIENT IN WEEK 31
     Route: 065
     Dates: start: 20081024

REACTIONS (15)
  - ALOPECIA [None]
  - ANAEMIA [None]
  - ANOREXIA [None]
  - DEPRESSED MOOD [None]
  - FATIGUE [None]
  - HEADACHE [None]
  - HERNIA [None]
  - INCISION SITE PAIN [None]
  - INJECTION SITE PAIN [None]
  - INSOMNIA [None]
  - LOSS OF CONSCIOUSNESS [None]
  - NAIL DISCOLOURATION [None]
  - PAIN [None]
  - TOOTHACHE [None]
  - WEIGHT DECREASED [None]
